FAERS Safety Report 4345664-6 (Version None)
Quarter: 2004Q2

REPORT INFORMATION
  Report Type: 
  Country: None (occurrence: None)
  Receive Date: 20040421
  Receipt Date: 20040409
  Transmission Date: 20050107
  Serious: Yes (Life-Threatening, Other)
  Sender: FDA-Public Use
  Company Number: HQWYE432612APR04

PATIENT
  Age: 10 Year
  Sex: Female
  Weight: 40.86 kg

DRUGS (2)
  1. CHILDREN'S ADVIL (IBUPROFEN, SUSPENSION) [Suspect]
     Indication: MYALGIA
     Dosage: ORAL
     Route: 048
  2. CHILDREN'S ADVIL (IBUPROFEN, SUSPENSION) [Suspect]
     Indication: PAIN IN EXTREMITY
     Dosage: ORAL
     Route: 048

REACTIONS (2)
  - ANAPHYLACTIC SHOCK [None]
  - URTICARIA [None]
